FAERS Safety Report 8611872-9 (Version None)
Quarter: 2012Q3

REPORT INFORMATION
  Report Type: 
  Country: None (occurrence: None)
  Receive Date: 20120822
  Receipt Date: 20120815
  Transmission Date: 20120928
  Serious: Yes (Other)
  Sender: FDA-Public Use
  Company Number: US-PFIZER INC-2010156732

PATIENT
  Age: 79 Year
  Sex: Female

DRUGS (24)
  1. ZOLOFT [Suspect]
     Dosage: UNK
  2. CARDURA [Suspect]
     Dosage: UNK
  3. TEKTURNA [Suspect]
     Dosage: UNK
  4. PROZAC [Suspect]
     Dosage: UNK
  5. EFFEXOR XR [Concomitant]
     Dosage: UNK
  6. TIAZAC [Suspect]
     Dosage: UNK
  7. DILTIAZEM [Suspect]
     Dosage: UNK
  8. CYMBALTA [Suspect]
     Dosage: UNK
  9. MIRTAZAPINE [Suspect]
     Dosage: UNK
  10. FENTANYL [Suspect]
     Dosage: UNK
  11. LEVAQUIN [Suspect]
  12. CIPROFLOXACIN HCL [Suspect]
     Dosage: UNK
  13. VASOTEC [Suspect]
     Dosage: UNK
  14. CARTIA XT [Suspect]
     Dosage: UNK
  15. DIOVAN [Suspect]
     Dosage: UNK
  16. NAPROXEN SODIUM [Suspect]
     Dosage: UNK
  17. PROTONIX [Concomitant]
     Dosage: UNK
  18. NORVASC [Suspect]
     Dosage: UNK
  19. WELLBUTRIN XL [Suspect]
     Dosage: UNK
  20. TOPROL-XL [Suspect]
  21. PAXIL [Suspect]
     Dosage: UNK
  22. MICARDIS [Suspect]
     Dosage: UNK
  23. CELEBREX [Suspect]
     Dosage: UNK
  24. MACROBID [Suspect]
     Dosage: UNK

REACTIONS (21)
  - DISORIENTATION [None]
  - ANXIETY [None]
  - RESTLESS LEGS SYNDROME [None]
  - BLOOD PRESSURE INCREASED [None]
  - ARTHRALGIA [None]
  - ORTHOSTATIC HYPOTENSION [None]
  - BLOOD CREATINE INCREASED [None]
  - PHARYNGEAL OEDEMA [None]
  - ABDOMINAL PAIN [None]
  - NAUSEA [None]
  - PALPITATIONS [None]
  - HYPOTENSION [None]
  - PRURITUS [None]
  - TREMOR [None]
  - FEELING OF BODY TEMPERATURE CHANGE [None]
  - NIGHTMARE [None]
  - MUSCLE SPASMS [None]
  - HEART RATE DECREASED [None]
  - AGITATION [None]
  - DIARRHOEA [None]
  - DYSPEPSIA [None]
